FAERS Safety Report 4835469-1 (Version None)
Quarter: 2005Q4

REPORT INFORMATION
  Report Type: 
  Country: None (occurrence: None)
  Receive Date: 20051122
  Receipt Date: 20051122
  Transmission Date: 20060501
  Serious: Yes (Life-Threatening)
  Sender: FDA-Public Use
  Company Number: None

PATIENT
  Age: 56 Year
  Sex: Male

DRUGS (1)
  1. ALTEPLASE    100MG    GENENTECH [Suspect]
     Indication: CEREBROVASCULAR ACCIDENT
     Dosage: 100MG   ONCE    IV
     Route: 042
     Dates: start: 20051121, end: 20051121

REACTIONS (1)
  - HAEMATEMESIS [None]
